FAERS Safety Report 7758192-2 (Version None)
Quarter: 2011Q3

REPORT INFORMATION
  Report Type: 
  Country: None (occurrence: None)
  Receive Date: 20110919
  Receipt Date: 20110912
  Transmission Date: 20111222
  Serious: No
  Sender: FDA-Public Use
  Company Number: US-BIOGENIDEC-2011BI035570

PATIENT
  Age: 51 Year
  Sex: Female

DRUGS (2)
  1. AVONEX [Suspect]
     Route: 030
     Dates: start: 20030101
  2. AVONEX [Suspect]
     Indication: MULTIPLE SCLEROSIS
     Route: 030
     Dates: start: 20000630, end: 20030101

REACTIONS (12)
  - INJURY ASSOCIATED WITH DEVICE [None]
  - TEMPOROMANDIBULAR JOINT SYNDROME [None]
  - SINUSITIS [None]
  - MASS [None]
  - PYREXIA [None]
  - BRAIN NEOPLASM [None]
  - HEADACHE [None]
  - GENERAL SYMPTOM [None]
  - OEDEMA PERIPHERAL [None]
  - MUSCLE DISORDER [None]
  - MUSCLE TIGHTNESS [None]
  - MYALGIA [None]
